FAERS Safety Report 5997496-0 (Version None)
Quarter: 2008Q4

REPORT INFORMATION
  Report Type: 
  Country: None (occurrence: None)
  Receive Date: 20081212
  Receipt Date: 20081113
  Transmission Date: 20090506
  Serious: No
  Sender: FDA-Public Use
  Company Number: US-ABBOTT-08P-163-0487851-00

PATIENT
  Sex: Female
  Weight: 74.002 kg

DRUGS (3)
  1. HUMIRA [Suspect]
     Indication: RHEUMATOID ARTHRITIS
     Route: 058
     Dates: start: 20080827, end: 20081008
  2. HUMIRA [Suspect]
     Route: 058
     Dates: start: 20081006
  3. INDAPAMIDE [Concomitant]
     Indication: DRUG USE FOR UNKNOWN INDICATION

REACTIONS (7)
  - ALOPECIA [None]
  - DRUG INEFFECTIVE [None]
  - INCORRECT DOSE ADMINISTERED [None]
  - INFLAMMATION [None]
  - INJECTION SITE PAIN [None]
  - PAIN [None]
  - RHEUMATOID ARTHRITIS [None]
